FAERS Safety Report 7917301-2 (Version None)
Quarter: 2011Q4

REPORT INFORMATION
  Report Type: 
  Country: None (occurrence: None)
  Receive Date: 20111116
  Receipt Date: 20111108
  Transmission Date: 20120403
  Serious: Yes (Other)
  Sender: FDA-Public Use
  Company Number: PHEH2011US008554

PATIENT
  Sex: Female

DRUGS (7)
  1. NEXIUM [Concomitant]
     Indication: GASTROOESOPHAGEAL REFLUX DISEASE
     Dosage: 40 MG, QD
     Dates: start: 20040101
  2. CITALOPRAM HYDROBROMIDE [Concomitant]
     Dosage: 40 MG, QD
     Dates: start: 20110801
  3. GILENYA [Suspect]
     Indication: MULTIPLE SCLEROSIS
     Dosage: 0.5 MG, QD
     Route: 048
     Dates: start: 20110617, end: 20111012
  4. IBUPROFEN [Concomitant]
     Indication: PAIN MANAGEMENT
     Dosage: TWO TABLETS, PRN
     Dates: start: 19990101
  5. ALPRAZOLAM [Concomitant]
     Indication: ANXIETY
     Dosage: 0.5 MG, BID
     Dates: start: 20070101
  6. AMBIEN [Concomitant]
     Indication: INSOMNIA
     Dosage: 10 MG, QD
     Dates: start: 20020101
  7. MULTI-VITAMIN [Concomitant]
     Indication: ROUTINE HEALTH MAINTENANCE
     Dosage: UNK UKN, QD
     Dates: start: 19990101

REACTIONS (6)
  - EYE INFECTION [None]
  - MACULAR OEDEMA [None]
  - VISUAL IMPAIRMENT [None]
  - HEADACHE [None]
  - RETINAL ISCHAEMIA [None]
  - VISUAL ACUITY REDUCED [None]
